FAERS Safety Report 17796626 (Version 2)
Quarter: 2020Q3

REPORT INFORMATION
  Report Type: Spontaneous
  Country: ZA (occurrence: ZA)
  Receive Date: 20200518
  Receipt Date: 20200923
  Transmission Date: 20201102
  Serious: Yes (Other)
  Sender: FDA-Public Use
  Company Number: ZA-AMGEN-ZAFSP2019190373

PATIENT
  Age: 25 Year
  Sex: Female
  Weight: 65 kg

DRUGS (1)
  1. ENBREL [Suspect]
     Active Substance: ETANERCEPT
     Indication: PRODUCT USED FOR UNKNOWN INDICATION
     Dosage: 50 MILLIGRAM, QWK
     Route: 058
     Dates: start: 20191015

REACTIONS (13)
  - Immune system disorder [Unknown]
  - Injection site pain [Recovering/Resolving]
  - Weight decreased [Unknown]
  - Normochromic normocytic anaemia [Unknown]
  - Blood sodium decreased [Unknown]
  - Leukopenia [Unknown]
  - Injection site erythema [Recovering/Resolving]
  - Haematocrit decreased [Not Recovered/Not Resolved]
  - Red blood cell count decreased [Unknown]
  - Blood creatinine decreased [Unknown]
  - Haemoglobin decreased [Not Recovered/Not Resolved]
  - Injection site pruritus [Unknown]
  - Decreased appetite [Unknown]

NARRATIVE: CASE EVENT DATE: 2019
